FAERS Safety Report 5099086-3 (Version None)
Quarter: 2006Q3

REPORT INFORMATION
  Report Type: 
  Country: None (occurrence: None)
  Receive Date: 20060731
  Receipt Date: 20060209
  Transmission Date: 20061208
  Serious: Yes (Other)
  Sender: FDA-Public Use
  Company Number: 221446

PATIENT
  Age: 52 Year
  Sex: Male
  Weight: 90.7 kg

DRUGS (1)
  1. RITUXAN [Suspect]
     Indication: NON-HODGKIN'S LYMPHOMA
     Dosage: 700, 1/WEEK, INTRAVENOUS
     Route: 042
     Dates: start: 20050812, end: 20060203

REACTIONS (1)
  - NON-HODGKIN'S LYMPHOMA RECURRENT [None]
